FAERS Safety Report 7216265-7 (Version None)
Quarter: 2011Q1

REPORT INFORMATION
  Report Type: 
  Country: None (occurrence: None)
  Receive Date: 20110107
  Receipt Date: 20101216
  Transmission Date: 20110831
  Serious: No
  Sender: FDA-Public Use
  Company Number: US-B.I. PHARMACEUTICALS,INC./RIDGEFIELD-2010-BP-14849BP

PATIENT
  Sex: Female

DRUGS (2)
  1. PRADAXA [Suspect]
  2. MEDICATION NOT FURTHER SPECIFIED [Concomitant]

REACTIONS (1)
  - CONSTIPATION [None]
